FAERS Safety Report 8243491-0 (Version None)
Quarter: 2012Q1

REPORT INFORMATION
  Report Type: 
  Country: None (occurrence: None)
  Receive Date: 20120329
  Receipt Date: 20120321
  Transmission Date: 20120608
  Serious: Yes (Other)
  Sender: FDA-Public Use
  Company Number: PHHY2011US61432

PATIENT
  Sex: Male
  Weight: 65.76 kg

DRUGS (3)
  1. GILENYA [Suspect]
     Indication: RELAPSING-REMITTING MULTIPLE SCLEROSIS
     Dosage: 0.5 MG, DAILY
     Route: 048
     Dates: start: 20110624, end: 20111201
  2. FLONASE [Concomitant]
  3. ALLEGRY [Concomitant]

REACTIONS (5)
  - ABDOMINAL PAIN UPPER [None]
  - FATIGUE [None]
  - HEAT EXHAUSTION [None]
  - DEFAECATION URGENCY [None]
  - WEIGHT DECREASED [None]
